FAERS Safety Report 4694932-7 (Version None)
Quarter: 2005Q2

REPORT INFORMATION
  Report Type: 
  Country: None (occurrence: None)
  Receive Date: 20050620
  Receipt Date: 20050609
  Transmission Date: 20051028
  Serious: Yes (Other)
  Sender: FDA-Public Use
  Company Number: GXKR2005PL01205

PATIENT
  Age: 31 Year
  Sex: Female

DRUGS (3)
  1. FLONIDAN            (LORATADINE) [Suspect]
     Indication: SINUSITIS
     Dosage: 20 MG, QD, ORAL
     Route: 048
  2. NELOREN                           (LINCOMYCIN) [Suspect]
     Indication: SINUSITIS
     Dosage: 1200 MG, QD, INTRAMUSCULAR
     Route: 030
  3. SINUPRET [Concomitant]

REACTIONS (1)
  - HAEMATURIA [None]
